FAERS Safety Report 9348296 (Version 4)
Quarter: 2014Q1

REPORT INFORMATION
  Report Type: Spontaneous
  Country: FR (occurrence: FR)
  Receive Date: 20130614
  Receipt Date: 20140210
  Transmission Date: 20141002
  Serious: Yes (Hospitalization, Other)
  Sender: FDA-Public Use
  Company Number: FR-PFIZER INC-2013175960

PATIENT
  Age: 69 Year
  Sex: Male

DRUGS (4)
  1. FLUOROURACILE PFIZER [Suspect]
     Indication: ADENOCARCINOMA OF COLON
     Dosage: 5320 MG, CYCLIC (7 COURSES)
     Route: 042
     Dates: start: 20121106, end: 20130211
  2. IRINOTECAN MYLAN [Suspect]
     Indication: ADENOCARCINOMA OF COLON
     Dosage: 340 MG, CYCLIC (7 COURSES)
     Route: 042
     Dates: start: 20121106, end: 20130211
  3. AVASTIN [Suspect]
     Indication: ADENOCARCINOMA OF COLON
     Dosage: 375 MG, CYCLIC (6 COURSES)
     Route: 042
     Dates: start: 20121120, end: 20130211
  4. FOLINIC ACID [Concomitant]
     Indication: ADENOCARCINOMA OF COLON
     Dosage: UNK, CYCLIC (7 COURSES)
     Dates: start: 20121106, end: 20130211

REACTIONS (2)
  - Wallenberg syndrome [Recovered/Resolved]
  - Ischaemic stroke [Recovered/Resolved]
